FAERS Safety Report 9013333 (Version 1)
Quarter: 2013Q1

REPORT INFORMATION
  Report Type: Spontaneous
  Country: US (occurrence: None)
  Receive Date: 20130107
  Receipt Date: 20130107
  Transmission Date: 20140127
  Serious: Yes (Life-Threatening)
  Sender: FDA-Public Use
  Company Number: None

PATIENT
  Age: 88 Year
  Sex: Male
  Weight: 70.1 kg

DRUGS (1)
  1. VANCOMYCIN [Suspect]
     Indication: ANTIBIOTIC PROPHYLAXIS
     Route: 041
     Dates: start: 20121203, end: 20121203

REACTIONS (6)
  - Pain [None]
  - Bradycardia [None]
  - Hypotension [None]
  - Unresponsive to stimuli [None]
  - Blood pressure immeasurable [None]
  - Pulse absent [None]
